FAERS Safety Report 10193855 (Version 1)
Quarter: 2014Q2

REPORT INFORMATION
  Report Type: Spontaneous
  Country: US (occurrence: US)
  Receive Date: 20140524
  Receipt Date: 20140524
  Transmission Date: 20141212
  Serious: No
  Sender: FDA-Public Use
  Company Number: US-SANOFI-AVENTIS-2013SA045033

PATIENT
  Age: 53 Year
  Sex: Male

DRUGS (2)
  1. LANTUS SOLOSTAR [Suspect]
     Indication: DIABETES MELLITUS
     Dosage: TAKEN FROM: 1 YEAR AGO DOSE:15 UNIT(S)
     Route: 051
  2. SOLOSTAR [Concomitant]
     Indication: DIABETES MELLITUS
     Dosage: TAKEN FROM: 1 YEAR AGO

REACTIONS (2)
  - Dizziness [Unknown]
  - Expired product administered [Unknown]
